FAERS Safety Report 11989931 (Version 1)
Quarter: 2016Q1

REPORT INFORMATION
  Report Type: Other
  Country: US (occurrence: US)
  Receive Date: 20160202
  Receipt Date: 20160202
  Transmission Date: 20160526
  Serious: Yes (Other)
  Sender: FDA-Public Use
  Company Number: US-GUTHY-RENKER LLC-1047205

PATIENT
  Age: 50 Year
  Sex: Female

DRUGS (3)
  1. IT COSMETICS FOUNDATION BYE BYE FOUNDATION SPF 50 [Suspect]
     Active Substance: TITANIUM DIOXIDE\ZINC OXIDE
     Indication: PHOTOSENSITIVITY REACTION
     Route: 061
     Dates: start: 20151121, end: 20151125
  2. IT COSMETICS FOUNDATION BYE BYE FOUNDATION SPF 50 [Suspect]
     Active Substance: TITANIUM DIOXIDE\ZINC OXIDE
     Indication: PROPHYLAXIS
     Route: 061
     Dates: start: 20151121, end: 20151125
  3. BLOOD PRESSURE MEDICATION [Concomitant]
     Active Substance: UNSPECIFIED INGREDIENT

REACTIONS (3)
  - Rash macular [None]
  - Swelling face [Recovered/Resolved]
  - Application site pruritus [None]

NARRATIVE: CASE EVENT DATE: 20151125
